FAERS Safety Report 25706424 (Version 1)
Quarter: 2025Q3

REPORT INFORMATION
  Report Type: Spontaneous
  Country: US (occurrence: None)
  Receive Date: 20250820
  Receipt Date: 20250820
  Transmission Date: 20251020
  Serious: Yes (Other)
  Sender: FDA-CTU
  Company Number: None

PATIENT
  Age: 44 Year
  Sex: Female
  Weight: 60.85 kg

DRUGS (8)
  1. TYENNE [Suspect]
     Active Substance: TOCILIZUMAB-AAZG
     Indication: Rheumatoid arthritis
     Route: 058
     Dates: start: 20250501, end: 20250811
  2. colestipol 1 g [Concomitant]
     Dates: start: 20181107
  3. folic acid 1 mg [Concomitant]
     Dates: start: 20200106
  4. HYDROXYCHLOROQUINE [Concomitant]
     Active Substance: HYDROXYCHLOROQUINE
     Dates: start: 20210712
  5. METHOTREXATE [Concomitant]
     Active Substance: METHOTREXATE
     Dates: start: 20200106
  6. PREDNISONE [Concomitant]
     Active Substance: PREDNISONE
     Dates: start: 20181120
  7. ACTEMRA [Concomitant]
     Active Substance: TOCILIZUMAB
     Dates: start: 20201218, end: 20250424
  8. Nurtec 75 mg [Concomitant]
     Dates: start: 20250605

REACTIONS (3)
  - Headache [None]
  - Aspartate aminotransferase increased [None]
  - Alanine aminotransferase increased [None]

NARRATIVE: CASE EVENT DATE: 20250811
